FAERS Safety Report 22829019 (Version 5)
Quarter: 2024Q2

REPORT INFORMATION
  Report Type: Report from Study
  Country: FR (occurrence: FR)
  Receive Date: 20230816
  Receipt Date: 20240509
  Transmission Date: 20240716
  Serious: Yes (Other)
  Sender: FDA-Public Use
  Company Number: FR-RECORDATI-2023004756

PATIENT
  Age: 51 Year
  Sex: Female
  Weight: 48 kg

DRUGS (12)
  1. MORPHINE SULFATE [Suspect]
     Active Substance: MORPHINE SULFATE
     Indication: Cancer pain
     Dosage: UNK
     Route: 048
     Dates: start: 20220727, end: 20221221
  2. MORPHINE SULFATE [Suspect]
     Active Substance: MORPHINE SULFATE
     Dosage: 40 MILLIGRAM, QD
     Route: 048
     Dates: start: 20221222, end: 20221223
  3. MORPHINE SULFATE [Suspect]
     Active Substance: MORPHINE SULFATE
     Dosage: 20 MILLIGRAM, QD
     Route: 048
     Dates: start: 20221223, end: 20221224
  4. METHADONE HYDROCHLORIDE [Suspect]
     Active Substance: METHADONE HYDROCHLORIDE
     Indication: Cancer pain
     Dosage: 15 MG, QD
     Route: 065
     Dates: start: 20221222, end: 20221223
  5. METHADONE HYDROCHLORIDE [Suspect]
     Active Substance: METHADONE HYDROCHLORIDE
     Dosage: 30 MG, QD
     Route: 065
     Dates: start: 20221226, end: 20221226
  6. METHADONE HYDROCHLORIDE [Suspect]
     Active Substance: METHADONE HYDROCHLORIDE
     Dosage: 20 MG, QD
     Route: 065
     Dates: start: 20221224, end: 20221224
  7. METHADONE HYDROCHLORIDE [Suspect]
     Active Substance: METHADONE HYDROCHLORIDE
     Dosage: 15 MG, QD
     Route: 065
     Dates: start: 20221225, end: 20221225
  8. METHADONE HYDROCHLORIDE [Suspect]
     Active Substance: METHADONE HYDROCHLORIDE
     Dosage: 15 MG, QD
     Route: 065
     Dates: start: 20221223, end: 20221223
  9. METHADONE HYDROCHLORIDE [Suspect]
     Active Substance: METHADONE HYDROCHLORIDE
     Dosage: 20 MG, QD
     Route: 065
     Dates: start: 20221224, end: 20221224
  10. METHADONE HYDROCHLORIDE [Suspect]
     Active Substance: METHADONE HYDROCHLORIDE
     Dosage: 30 MG, QD
     Route: 065
     Dates: start: 20221226
  11. METHADONE HYDROCHLORIDE [Suspect]
     Active Substance: METHADONE HYDROCHLORIDE
     Dosage: 15 MG, QD
     Route: 065
     Dates: start: 20221225, end: 20221225
  12. DOLIPRANE [Concomitant]
     Active Substance: ACETAMINOPHEN
     Indication: Analgesic therapy
     Dosage: INTERDOSES
     Route: 065

REACTIONS (14)
  - Hypoxia [Recovered/Resolved]
  - Hallucination [Recovered/Resolved]
  - Hallucination [Recovered/Resolved]
  - Nausea [Not Recovered/Not Resolved]
  - Constipation [Recovered/Resolved]
  - Confusional state [Recovered/Resolved]
  - Confusional state [Recovered/Resolved]
  - Myoclonus [Recovered/Resolved]
  - Myoclonus [Recovered/Resolved]
  - Dry mouth [Recovered/Resolved]
  - Dry mouth [Recovered/Resolved]
  - Somnolence [Recovered/Resolved]
  - Pruritus [Recovered/Resolved]
  - Pruritus [Unknown]

NARRATIVE: CASE EVENT DATE: 20220101
